FAERS Safety Report 16193399 (Version 1)
Quarter: 2019Q2

REPORT INFORMATION
  Report Type: Spontaneous
  Country: US (occurrence: US)
  Receive Date: 20190413
  Receipt Date: 20190413
  Transmission Date: 20190711
  Serious: No
  Sender: FDA-Public Use
  Company Number: US-009507513-1903USA011284

PATIENT
  Sex: Female
  Weight: 135.6 kg

DRUGS (1)
  1. NEXPLANON [Suspect]
     Active Substance: ETONOGESTREL
     Dosage: 1 IMPLANT, UNK, RIGHT (DOMINANT) ARM
     Route: 058
     Dates: start: 20190130, end: 20190322

REACTIONS (3)
  - Implant site pain [Unknown]
  - Affective disorder [Unknown]
  - Complication of device removal [Recovered/Resolved]

NARRATIVE: CASE EVENT DATE: 2019
